FAERS Safety Report 8057542-X (Version None)
Quarter: 2012Q1

REPORT INFORMATION
  Report Type: 
  Country: None (occurrence: None)
  Receive Date: 20120120
  Receipt Date: 20120110
  Transmission Date: 20120608
  Serious: Yes (Hospitalization, Other)
  Sender: FDA-Public Use
  Company Number: FR-AMGEN-FRASP2012002594

PATIENT
  Age: 70 Year
  Sex: Male

DRUGS (1)
  1. ENBREL [Suspect]
     Indication: ANKYLOSING SPONDYLITIS
     Dosage: UNK
     Dates: start: 20100913

REACTIONS (6)
  - DIPLOPIA [None]
  - VISUAL ACUITY REDUCED [None]
  - HEADACHE [None]
  - OCULAR MYASTHENIA [None]
  - VISION BLURRED [None]
  - EYELID PTOSIS [None]
